FAERS Safety Report 9869382 (Version 2)
Quarter: 2014Q1

REPORT INFORMATION
  Report Type: Spontaneous
  Country: JP (occurrence: JP)
  Receive Date: 20140205
  Receipt Date: 20140205
  Transmission Date: 20141002
  Serious: Yes (Other)
  Sender: FDA-Public Use
  Company Number: JP-ELI_LILLY_AND_COMPANY-JP201401008207

PATIENT
  Age: 65 Year
  Sex: Female

DRUGS (3)
  1. CYMBALTA [Suspect]
     Indication: NEUROPATHY PERIPHERAL
     Dosage: 20 MG, QD
     Route: 048
     Dates: start: 20140108, end: 20140109
  2. WARFARIN POTASSIUM [Interacting]
     Indication: PULMONARY INFARCTION
     Dosage: UNK
     Route: 048
     Dates: start: 20131014, end: 20140109
  3. LYRICA [Concomitant]
     Indication: NEUROPATHY PERIPHERAL
     Dosage: 25 MG, QD
     Route: 048
     Dates: end: 20140107

REACTIONS (5)
  - International normalised ratio increased [Recovered/Resolved]
  - International normalised ratio increased [Not Recovered/Not Resolved]
  - Drug interaction [Recovered/Resolved]
  - Drug interaction [Not Recovered/Not Resolved]
  - Off label use [Not Recovered/Not Resolved]
